FAERS Safety Report 25115663 (Version 2)
Quarter: 2025Q2

REPORT INFORMATION
  Report Type: Spontaneous
  Country: US (occurrence: None)
  Receive Date: 20250325
  Receipt Date: 20250620
  Transmission Date: 20250717
  Serious: Yes (Hospitalization, Other)
  Sender: EMMAUS LIFE SCIENCES
  Company Number: US-Emmaus Medical, Inc.-EMM202503-000028

PATIENT
  Age: 11 Year
  Sex: Male
  Weight: 30.2 kg

DRUGS (2)
  1. ENDARI [Suspect]
     Active Substance: GLUTAMINE
     Indication: Sickle cell disease
     Dates: start: 202104
  2. ENDARI [Suspect]
     Active Substance: GLUTAMINE
     Dates: start: 202208

REACTIONS (2)
  - Pyrexia [Recovered/Resolved]
  - Sickle cell anaemia with crisis [Unknown]

NARRATIVE: CASE EVENT DATE: 20250204
